FAERS Safety Report 12849353 (Version 1)
Quarter: 2016Q4

REPORT INFORMATION
  Report Type: Spontaneous
  Country: US (occurrence: US)
  Receive Date: 20161014
  Receipt Date: 20161014
  Transmission Date: 20170207
  Serious: No
  Sender: FDA-Public Use
  Company Number: US-TEVA-693836ACC

PATIENT
  Age: 17 Year
  Sex: Female
  Weight: 64.01 kg

DRUGS (2)
  1. LAMICTAL [Concomitant]
     Active Substance: LAMOTRIGINE
  2. PARAGARD T 380A [Suspect]
     Active Substance: COPPER
     Indication: CONTRACEPTION
     Dates: start: 20160304, end: 20160908

REACTIONS (3)
  - Back pain [Unknown]
  - Device expulsion [Recovered/Resolved]
  - Adnexa uteri pain [Unknown]

NARRATIVE: CASE EVENT DATE: 20160905
